FAERS Safety Report 23124089 (Version 1)
Quarter: 2023Q4

REPORT INFORMATION
  Report Type: Spontaneous
  Country: US (occurrence: US)
  Receive Date: 20231030
  Receipt Date: 20231030
  Transmission Date: 20240109
  Serious: Yes (Other)
  Sender: FDA-Public Use
  Company Number: US-SA-SAC20231026000021

PATIENT
  Age: 65 Year
  Sex: Female

DRUGS (1)
  1. GLYBURIDE [Suspect]
     Active Substance: GLYBURIDE
     Dosage: UNK
     Route: 065
     Dates: end: 2022

REACTIONS (1)
  - Renal failure [Unknown]
